FAERS Safety Report 10948648 (Version 1)
Quarter: 2015Q1

REPORT INFORMATION
  Report Type: Spontaneous
  Country: US (occurrence: None)
  Receive Date: 20150220
  Receipt Date: 20150220
  Transmission Date: 20150721
  Serious: No
  Sender: FDA-Public Use
  Company Number: 1000072254

PATIENT
  Age: 78 Year
  Sex: Female

DRUGS (2)
  1. TUDORZA PRESSAIR [Suspect]
     Active Substance: ACLIDINIUM BROMIDE
     Indication: CHRONIC OBSTRUCTIVE PULMONARY DISEASE
     Route: 055
     Dates: start: 201409, end: 201411
  2. ATENOLOL (ATENOLOL-)(ATENOLOL) [Concomitant]

REACTIONS (1)
  - Chromaturia [None]

NARRATIVE: CASE EVENT DATE: 201410
